FAERS Safety Report 5067180-9 (Version None)
Quarter: 2006Q3

REPORT INFORMATION
  Report Type: 
  Country: None (occurrence: None)
  Receive Date: 20060727
  Receipt Date: 20060715
  Transmission Date: 20061208
  Serious: Yes (Hospitalization, Other)
  Sender: FDA-Public Use
  Company Number: 2006088095

PATIENT
  Age: 53 Year
  Sex: Male
  Weight: 63.5036 kg

DRUGS (4)
  1. DILANTIN KAPSEAL [Suspect]
     Indication: CONVULSION
     Dosage: 400 MG (100 MG, FREQUENCY: QID INTERVAL: EVERY DAY) , ORAL
     Route: 048
  2. ALCOHOL (ETHANOL) [Suspect]
     Indication: DRUG USE FOR UNKNOWN INDICATION
  3. FOLIC ACID [Concomitant]
  4. MULTIVITAMIN [Concomitant]

REACTIONS (11)
  - ALCOHOL USE [None]
  - ANTICONVULSANT DRUG LEVEL DECREASED [None]
  - CEREBRAL ATROPHY [None]
  - CONVULSION [None]
  - DEHYDRATION [None]
  - EATING DISORDER [None]
  - FLUID RETENTION [None]
  - HEPATIC CIRRHOSIS [None]
  - HEPATOCELLULAR DAMAGE [None]
  - MALNUTRITION [None]
  - RENAL DISORDER [None]
